FAERS Safety Report 18776758 (Version 1)
Quarter: 2021Q1

REPORT INFORMATION
  Report Type: Spontaneous
  Country: US (occurrence: US)
  Receive Date: 20210123
  Receipt Date: 20210123
  Transmission Date: 20210419
  Serious: Yes (Hospitalization, Other)
  Sender: FDA-Public Use
  Company Number: US-GRANULES-US-2021GRALIT00031

PATIENT
  Age: 37 Year
  Sex: Male

DRUGS (2)
  1. PREDNISONE. [Interacting]
     Active Substance: PREDNISONE
     Indication: ACUTE KIDNEY INJURY
     Route: 065
  2. IBUPROFEN. [Suspect]
     Active Substance: IBUPROFEN
     Indication: TOOTHACHE
     Route: 065

REACTIONS (4)
  - Oliguria [Unknown]
  - Acute kidney injury [Recovered/Resolved]
  - Glomerulonephritis minimal lesion [Recovered/Resolved]
  - Renal tubular necrosis [Recovered/Resolved]
